FAERS Safety Report 5650417-2 (Version None)
Quarter: 2008Q1

REPORT INFORMATION
  Report Type: 
  Country: None (occurrence: None)
  Receive Date: 20080305
  Receipt Date: 20080225
  Transmission Date: 20080703
  Serious: Yes (Death, Hospitalization)
  Sender: FDA-Public Use
  Company Number: FR-JNJFOC-20080300065

PATIENT
  Age: 57 Year
  Sex: Male

DRUGS (13)
  1. ZALDIAR [Suspect]
     Indication: PAIN
     Route: 048
  2. ACETAMINOPHEN [Suspect]
     Route: 048
  3. ACETAMINOPHEN [Suspect]
     Indication: DRUG USE FOR UNKNOWN INDICATION
     Route: 048
  4. PROFENID [Suspect]
     Indication: PAIN
     Route: 030
  5. ACUPAN [Suspect]
     Indication: PAIN
     Route: 048
  6. MIOREL [Suspect]
     Indication: DRUG USE FOR UNKNOWN INDICATION
     Route: 048
  7. NUROFEN [Suspect]
     Indication: DRUG USE FOR UNKNOWN INDICATION
     Route: 048
  8. METHOCARBAMOL [Suspect]
     Indication: PAIN
     Route: 065
  9. EFFERALGAN [Suspect]
     Indication: BACK PAIN
     Route: 048
  10. PIROXICAM [Suspect]
     Indication: BACK PAIN
     Route: 048
  11. TETRAZEPAM [Suspect]
     Indication: BACK PAIN
  12. NABUMETONE [Suspect]
     Indication: DRUG USE FOR UNKNOWN INDICATION
     Route: 048
  13. AVLOCARDYL [Concomitant]
     Indication: SINUS TACHYCARDIA

REACTIONS (7)
  - ANAEMIA [None]
  - CARDIAC ARREST [None]
  - CYTOLYTIC HEPATITIS [None]
  - HISTIOCYTOSIS HAEMATOPHAGIC [None]
  - LUNG DISORDER [None]
  - PYREXIA [None]
  - THROMBOCYTOPENIA [None]
